FAERS Safety Report 7515734-X (Version None)
Quarter: 2011Q2

REPORT INFORMATION
  Report Type: 
  Country: None (occurrence: None)
  Receive Date: 20110601
  Receipt Date: 20100803
  Transmission Date: 20111010
  Serious: Yes (Other)
  Sender: FDA-Public Use
  Company Number: US-PFIZER INC-2010098117

PATIENT
  Age: 45 Year
  Sex: Female

DRUGS (3)
  1. OXYMORPHONE [Concomitant]
     Dosage: 80 MG, 2X/DAY
  2. CHANTIX [Suspect]
     Dosage: UNK
  3. OXYCODONE [Concomitant]
     Dosage: 10 MG, AS NEEDED

REACTIONS (2)
  - SUICIDAL IDEATION [None]
  - DEPRESSION [None]
